FAERS Safety Report 9387347 (Version 1)
Quarter: 2013Q3

REPORT INFORMATION
  Report Type: Spontaneous
  Country: US (occurrence: None)
  Receive Date: 20130703
  Receipt Date: 20130703
  Transmission Date: 20140515
  Serious: Yes (Other)
  Sender: FDA-Public Use
  Company Number: None

PATIENT
  Age: 60 Year
  Sex: Female
  Weight: 72.58 kg

DRUGS (1)
  1. AMIODARONE [Suspect]
     Indication: ARRHYTHMIA
     Route: 048
     Dates: start: 201201, end: 201203

REACTIONS (1)
  - Blood thyroid stimulating hormone increased [None]
